FAERS Safety Report 13699364 (Version 1)
Quarter: 2017Q2

REPORT INFORMATION
  Report Type: Spontaneous
  Country: GB (occurrence: GB)
  Receive Date: 20170628
  Receipt Date: 20170628
  Transmission Date: 20170830
  Serious: Yes (Hospitalization, Other)
  Sender: FDA-Public Use
  Company Number: GB-INTERNATIONAL MEDICATION SYSTEMS, LIMITED-2022638

PATIENT
  Age: 61 Year

DRUGS (1)
  1. LIGNOCAINE [Suspect]
     Active Substance: LIDOCAINE HYDROCHLORIDE
     Route: 042

REACTIONS (6)
  - Hyperkalaemia [Recovering/Resolving]
  - Agitation [Recovering/Resolving]
  - Bradyarrhythmia [Recovered/Resolved]
  - Generalised tonic-clonic seizure [Recovering/Resolving]
  - Toxicity to various agents [Recovering/Resolving]
  - Metabolic acidosis [Recovering/Resolving]
